FAERS Safety Report 6456882-5 (Version None)
Quarter: 2009Q4

REPORT INFORMATION
  Report Type: 
  Country: None (occurrence: None)
  Receive Date: 20091120
  Receipt Date: 20091110
  Transmission Date: 20100525
  Serious: Yes (Life-Threatening, Other)
  Sender: FDA-Public Use
  Company Number: AE 2009-146

PATIENT
  Sex: Female
  Weight: 60.782 kg

DRUGS (1)
  1. ELESTRIN [Suspect]
     Indication: MENOPAUSAL SYMPTOMS
     Dosage: 1 PUMP DAILY TOPICALLY
     Route: 061
     Dates: start: 20090701, end: 20090701

REACTIONS (1)
  - SUICIDAL IDEATION [None]
